FAERS Safety Report 7800339-3 (Version None)
Quarter: 2011Q4

REPORT INFORMATION
  Report Type: 
  Country: None (occurrence: None)
  Receive Date: 20111006
  Receipt Date: 20111003
  Transmission Date: 20120403
  Serious: Yes (Hospitalization)
  Sender: FDA-Public Use
  Company Number: US-AMGEN-USASP2011048696

PATIENT
  Age: 45 Year
  Sex: Female
  Weight: 62.948 kg

DRUGS (1)
  1. NPLATE [Suspect]
     Indication: THROMBOCYTOPENIA
     Dosage: 125 MUG, UNK
     Route: 058
     Dates: start: 20110217, end: 20110222

REACTIONS (2)
  - SEPSIS [None]
  - IDIOPATHIC THROMBOCYTOPENIC PURPURA [None]
